FAERS Safety Report 12716397 (Version 1)
Quarter: 2016Q3

REPORT INFORMATION
  Report Type: Spontaneous
  Country: IT (occurrence: IT)
  Receive Date: 20160906
  Receipt Date: 20160906
  Transmission Date: 20161109
  Serious: Yes (Hospitalization)
  Sender: FDA-Public Use
  Company Number: IT-TEVA-688644ACC

PATIENT
  Age: 85 Year
  Sex: Male

DRUGS (13)
  1. ACIDO ACETILSALICILICO SANDOZ - 100 MG COMPRESSE GASTRORESISTENTI [Concomitant]
     Indication: PRODUCT USED FOR UNKNOWN INDICATION
     Dosage: 100 MG
     Route: 048
     Dates: start: 20101110
  2. ENTUMIN - 100 MG/ML GOCCE ORALI, SOLUZIONE [Concomitant]
     Active Substance: CLOTHIAPINE
     Indication: PRODUCT USED FOR UNKNOWN INDICATION
     Dosage: 10 GTT
     Route: 048
  3. KAYEXALATE - POLVERE PER SOSPENSIONE ORALE E RETTALE [Concomitant]
     Indication: PRODUCT USED FOR UNKNOWN INDICATION
     Dosage: 1 DF
     Route: 048
     Dates: start: 20101110
  4. AMLODIPINE [Concomitant]
     Active Substance: AMLODIPINE BESYLATE
     Indication: PRODUCT USED FOR UNKNOWN INDICATION
     Dosage: 5 MG
     Route: 048
  5. TAREG - 80 MG COMPRESSE RIVESTITE CON FILM - NOVARTIS EUROPHARM LTD [Concomitant]
     Indication: PRODUCT USED FOR UNKNOWN INDICATION
     Dosage: 160 MG
     Route: 048
     Dates: start: 20101110
  6. FOLIFILL - 5 MG COMPRESSE - ITALFARMACO S.P.A. [Concomitant]
     Indication: PRODUCT USED FOR UNKNOWN INDICATION
     Dosage: 5 MG
     Route: 048
  7. ALLOPURINOLO TEVA ITALIA - 300 MG COMPRESSE - TEVA ITALIA S.R.L . [Suspect]
     Active Substance: ALLOPURINOL
     Indication: PRODUCT USED FOR UNKNOWN INDICATION
     Dosage: 150 MILLIGRAM DAILY;
     Route: 048
     Dates: start: 20160811, end: 20160813
  8. NORMASE EPS - 66.7PERCENT SCIROPPO [Concomitant]
     Indication: PRODUCT USED FOR UNKNOWN INDICATION
     Dosage: 2 DF
     Route: 048
  9. PANTORC - COMPRESSE GASTRORESISTENTI 20 MG - TAKEDA ITALIA S.P.A. [Concomitant]
     Indication: PRODUCT USED FOR UNKNOWN INDICATION
     Dosage: 20 MG
     Route: 048
  10. CONTRAMAL - 100 MG/ML GOCCE ORALI, SOLUZIONE - GRUNENTHAL ITALIA S.R.L [Concomitant]
     Indication: PRODUCT USED FOR UNKNOWN INDICATION
     Dosage: 5 GTT
     Route: 048
  11. CALCIUM SANDOZ - 500 MG COMPRESSE EFFERVESCENTI - MEDIFARM S.R.L. [Concomitant]
     Indication: PRODUCT USED FOR UNKNOWN INDICATION
     Dosage: 500 MG
     Route: 048
  12. LASIX [Concomitant]
     Active Substance: FUROSEMIDE
     Indication: PRODUCT USED FOR UNKNOWN INDICATION
     Dosage: 25 MG
     Route: 048
  13. CIPROXIN - 500 MG COMPRESSE RIVESTITE - BAYER S.P.A. [Suspect]
     Active Substance: CIPROFLOXACIN
     Indication: GENITOURINARY TRACT INFECTION
     Dosage: 1 GRAM DAILY;
     Route: 048
     Dates: start: 20160811, end: 20160812

REACTIONS (5)
  - Drug hypersensitivity [Unknown]
  - Skin reaction [Unknown]
  - Inflammation [Unknown]
  - Blister rupture [Unknown]
  - Rash vesicular [Unknown]

NARRATIVE: CASE EVENT DATE: 20160813
